FAERS Safety Report 22092830 (Version 1)
Quarter: 2023Q1

REPORT INFORMATION
  Report Type: Spontaneous
  Country: US (occurrence: US)
  Receive Date: 20230314
  Receipt Date: 20230314
  Transmission Date: 20230417
  Serious: Yes (Other)
  Sender: FDA-Public Use
  Company Number: US-drreddys-SPO/USA/23/0162174

PATIENT
  Age: 14 Year
  Sex: Female

DRUGS (2)
  1. ZENATANE [Suspect]
     Active Substance: ISOTRETINOIN
     Indication: Acne
     Dosage: RMA ISSUE DATE : 13 OCTOBER 2022 03:04:32 PM, 18 NOVEMBER 2022 01:32:31 PM AND 22 DECEMBER 2022 12:3
  2. ZENATANE [Suspect]
     Active Substance: ISOTRETINOIN
     Dosage: RMA ISSUE DATE : 23 JANUARY 2023 02:39:09 PM

REACTIONS (1)
  - Depression [Unknown]
